FAERS Safety Report 7955370-4 (Version None)
Quarter: 2011Q4

REPORT INFORMATION
  Report Type: 
  Country: None (occurrence: None)
  Receive Date: 20111202
  Receipt Date: 20111126
  Transmission Date: 20120403
  Serious: Yes (Other)
  Sender: FDA-Public Use
  Company Number: US-CEPHALON-US008547

PATIENT
  Sex: Female
  Weight: 68 kg

DRUGS (7)
  1. GABITRIL [Suspect]
     Route: 048
     Dates: start: 19990101
  2. GABITRIL [Suspect]
     Indication: CONVULSION
     Route: 048
     Dates: start: 19980225
  3. GABITRIL [Suspect]
     Route: 048
     Dates: start: 19980601
  4. GABITRIL [Suspect]
     Route: 048
     Dates: start: 19980101, end: 19990101
  5. GABITRIL [Suspect]
     Route: 048
  6. GABITRIL [Suspect]
     Route: 048
     Dates: start: 19990101
  7. GABITRIL [Suspect]
     Route: 048
     Dates: start: 19990101

REACTIONS (5)
  - AUTISM [None]
  - CONVULSION [None]
  - DYSPHEMIA [None]
  - EUPHORIC MOOD [None]
  - WEIGHT DECREASED [None]
